FAERS Safety Report 24152245 (Version 2)
Quarter: 2024Q3

REPORT INFORMATION
  Report Type: Spontaneous
  Country: US (occurrence: US)
  Receive Date: 20240730
  Receipt Date: 20240827
  Transmission Date: 20241017
  Serious: No
  Sender: PFIZER
  Company Number: US-PFIZER INC-202400218924

PATIENT
  Age: 59 Year
  Sex: Female

DRUGS (1)
  1. XELJANZ [Suspect]
     Active Substance: TOFACITINIB CITRATE
     Dosage: 5 MG

REACTIONS (7)
  - Nausea [Unknown]
  - Diarrhoea [Unknown]
  - Influenza [Unknown]
  - Pyrexia [Unknown]
  - Dry throat [Unknown]
  - Cough [Unknown]
  - Pain [Unknown]
